FAERS Safety Report 8213241-2 (Version None)
Quarter: 2012Q1

REPORT INFORMATION
  Report Type: 
  Country: None (occurrence: None)
  Receive Date: 20120315
  Receipt Date: 20120307
  Transmission Date: 20120608
  Serious: Yes (Hospitalization, Other)
  Sender: FDA-Public Use
  Company Number: US-MUTUAL PHARMACEUTICAL COMPANY, INC.-CLCY20120042

PATIENT
  Age: 60 Year
  Sex: Male

DRUGS (4)
  1. AMIODARONE HYDROCHLORIDE [Suspect]
     Indication: PRODUCT USED FOR UNKNOWN INDICATION
     Route: 065
     Dates: end: 20110101
  2. COLCRYS [Suspect]
     Indication: GOUT
     Route: 048
     Dates: end: 20110101
  3. COLCHICINE [Suspect]
     Indication: GOUT
     Route: 065
     Dates: end: 20110101
  4. UNSPECIFIED DIURETIC [Suspect]
     Indication: PRODUCT USED FOR UNKNOWN INDICATION
     Route: 065

REACTIONS (9)
  - TOXICITY TO VARIOUS AGENTS [None]
  - RENAL FAILURE ACUTE [None]
  - ABASIA [None]
  - DRUG INTERACTION [None]
  - BLOOD CREATINE PHOSPHOKINASE INCREASED [None]
  - DEHYDRATION [None]
  - DYSSTASIA [None]
  - CREATININE RENAL CLEARANCE DECREASED [None]
  - BIOPSY MUSCLE ABNORMAL [None]
